FAERS Safety Report 9529612 (Version 6)
Quarter: 2013Q4

REPORT INFORMATION
  Report Type: Report from Study
  Country: CA (occurrence: CA)
  Receive Date: 20130917
  Receipt Date: 20131010
  Transmission Date: 20140711
  Serious: Yes (Hospitalization, Other)
  Sender: FDA-Public Use
  Company Number: CA-ABBVIE-13P-028-1121371-00

PATIENT
  Age: 47 Year
  Sex: Female
  Weight: 79.45 kg

DRUGS (6)
  1. HUMIRA [Suspect]
     Indication: CROHN^S DISEASE
     Route: 058
     Dates: start: 20120214, end: 20130723
  2. HUMIRA [Suspect]
     Route: 058
     Dates: start: 20130723
  3. HUMIRA [Suspect]
     Route: 058
  4. ELTROXIN [Concomitant]
     Indication: THYROID DISORDER
     Route: 048
  5. BIRTH CONTROL PILL (NOS) [Concomitant]
     Indication: CONTRACEPTION
     Route: 048
     Dates: end: 201306
  6. INFLAMMATION MEDICATION (NOS) [Concomitant]
     Indication: CROHN^S DISEASE
     Route: 048

REACTIONS (29)
  - Enterovesical fistula [Unknown]
  - Blood potassium decreased [Not Recovered/Not Resolved]
  - Abdominal distension [Not Recovered/Not Resolved]
  - Haemoglobin decreased [Unknown]
  - Crohn^s disease [Unknown]
  - Abdominal pain [Not Recovered/Not Resolved]
  - Abdominal pain [Unknown]
  - Renal cyst [Not Recovered/Not Resolved]
  - Dysuria [Not Recovered/Not Resolved]
  - Feeling hot [Not Recovered/Not Resolved]
  - Heart rate decreased [Unknown]
  - Blood urine present [Not Recovered/Not Resolved]
  - Haematochezia [Not Recovered/Not Resolved]
  - Dizziness [Not Recovered/Not Resolved]
  - Drug effect decreased [Unknown]
  - Heart rate increased [Not Recovered/Not Resolved]
  - Heart rate increased [Not Recovered/Not Resolved]
  - Urinary tract infection [Not Recovered/Not Resolved]
  - Inflammation [Not Recovered/Not Resolved]
  - Abdominal pain [Not Recovered/Not Resolved]
  - Fall [Unknown]
  - Gait disturbance [Unknown]
  - Myalgia [Not Recovered/Not Resolved]
  - Hyperhidrosis [Unknown]
  - Abdominal pain [Unknown]
  - Pain [Unknown]
  - Insomnia [Not Recovered/Not Resolved]
  - Wound haemorrhage [Not Recovered/Not Resolved]
  - Incisional hernia [Unknown]
